FAERS Safety Report 17186949 (Version 1)
Quarter: 2019Q4

REPORT INFORMATION
  Report Type: Spontaneous
  Country: CZ (occurrence: CZ)
  Receive Date: 20191220
  Receipt Date: 20191220
  Transmission Date: 20200122
  Serious: Yes (Other)
  Sender: FDA-Public Use
  Company Number: CZ-MYLANLABS-2019M1126217

PATIENT
  Age: 54 Year
  Sex: Female

DRUGS (2)
  1. CARBOPLATIN. [Suspect]
     Active Substance: CARBOPLATIN
     Indication: ADRENAL GLAND CANCER
     Dosage: AUC (AREA UNDER CURVE) 5
     Route: 065
     Dates: end: 201210
  2. PACLITAXEL. [Suspect]
     Active Substance: PACLITAXEL
     Indication: ADRENAL GLAND CANCER
     Dosage: 175 MG/M2, Q3W
     Route: 065
     Dates: end: 200808

REACTIONS (6)
  - Adrenal gland cancer [Unknown]
  - Tumour marker increased [Unknown]
  - Neuropathy peripheral [Unknown]
  - Thrombocytopenia [Unknown]
  - Metastases to peritoneum [Unknown]
  - Malignant neoplasm progression [Unknown]

NARRATIVE: CASE EVENT DATE: 201206
